FAERS Safety Report 21404655 (Version 1)
Quarter: 2022Q4

REPORT INFORMATION
  Report Type: Spontaneous
  Country: CN (occurrence: CN)
  Receive Date: 20221003
  Receipt Date: 20221003
  Transmission Date: 20230112
  Serious: Yes (Other)
  Sender: FDA-Public Use
  Company Number: CN-009507513-2209CHN011280

PATIENT
  Age: 36 Year
  Sex: Male
  Weight: 72 kg

DRUGS (4)
  1. CILASTATIN SODIUM\IMIPENEM [Suspect]
     Active Substance: CILASTATIN SODIUM\IMIPENEM
     Indication: Infection
     Dosage: 1 G, TID
     Route: 041
     Dates: start: 20220514, end: 20220518
  2. VANCOMYCIN HYDROCHLORIDE [Suspect]
     Active Substance: VANCOMYCIN HYDROCHLORIDE
     Indication: Infection
     Dosage: 1 G, BID
     Route: 041
     Dates: start: 20220518, end: 20220519
  3. SODIUM CHLORIDE [Concomitant]
     Active Substance: SODIUM CHLORIDE
     Indication: Medication dilution
     Dosage: 100 ML, TID
     Route: 041
     Dates: start: 20220514, end: 20220518
  4. SODIUM CHLORIDE [Concomitant]
     Active Substance: SODIUM CHLORIDE
     Dosage: 100 ML, BID
     Route: 041
     Dates: start: 20220518, end: 20220519

REACTIONS (1)
  - Alkalosis [Recovering/Resolving]

NARRATIVE: CASE EVENT DATE: 20220519
